FAERS Safety Report 9748491 (Version 2)
Quarter: 2013Q4

REPORT INFORMATION
  Report Type: Report from Study
  Country: US (occurrence: US)
  Receive Date: 20131212
  Receipt Date: 20131219
  Transmission Date: 20140711
  Serious: Yes (Hospitalization)
  Sender: FDA-Public Use
  Company Number: US-JNJFOC-20131203556

PATIENT
  Age: 15 Year
  Sex: Female
  Weight: 38.1 kg

DRUGS (6)
  1. REMICADE [Suspect]
     Indication: CROHN^S DISEASE
     Route: 042
     Dates: start: 20110627, end: 20130124
  2. HUMIRA [Concomitant]
     Route: 065
     Dates: start: 20131207
  3. HUMIRA [Concomitant]
     Route: 065
     Dates: start: 20130301
  4. PREDNISONE [Concomitant]
     Route: 065
  5. IRON [Concomitant]
     Route: 065
  6. VITAMIN D [Concomitant]
     Route: 065

REACTIONS (1)
  - Crohn^s disease [Recovered/Resolved]
